FAERS Safety Report 21865573 (Version 1)
Quarter: 2023Q1

REPORT INFORMATION
  Report Type: Spontaneous
  Country: US (occurrence: US)
  Receive Date: 20230116
  Receipt Date: 20230116
  Transmission Date: 20230417
  Serious: No
  Sender: FDA-Public Use
  Company Number: US-009507513-2301USA001688

PATIENT
  Age: 38 Year
  Sex: Male

DRUGS (4)
  1. PRIMAXIN IV [Suspect]
     Active Substance: CILASTATIN SODIUM\IMIPENEM
     Indication: Necrotising soft tissue infection
  2. PRIMAXIN IV [Suspect]
     Active Substance: CILASTATIN SODIUM\IMIPENEM
     Indication: Clostridial infection
  3. CUBICIN [Suspect]
     Active Substance: DAPTOMYCIN
     Indication: Necrotising soft tissue infection
     Dosage: UNK
  4. CUBICIN [Suspect]
     Active Substance: DAPTOMYCIN
     Indication: Clostridial infection
     Dosage: 4 MILLIGRAM/KILOGRAM, QD

REACTIONS (1)
  - Product use in unapproved indication [Unknown]
